FAERS Safety Report 25935227 (Version 1)
Quarter: 2025Q4

REPORT INFORMATION
  Report Type: Spontaneous
  Country: US (occurrence: US)
  Receive Date: 20251017
  Receipt Date: 20251017
  Transmission Date: 20260117
  Serious: Yes (Death, Other)
  Sender: PFIZER
  Company Number: US-PFIZER INC-PV202500110056

PATIENT
  Age: 87 Year
  Sex: Female

DRUGS (4)
  1. BRAFTOVI [Suspect]
     Active Substance: ENCORAFENIB
     Indication: Localised oedema
     Dosage: 300 MG, 1X/DAY (TAKE 4 CAPSULES BY MOUTH ONCE DAILY)
     Route: 048
  2. BRAFTOVI [Suspect]
     Active Substance: ENCORAFENIB
     Indication: Malignant melanoma
  3. MEKTOVI [Suspect]
     Active Substance: BINIMETINIB
     Indication: Localised oedema
     Dosage: 30 MG, 2X/DAY  (TAKE 2 TABLETS, TWICE DAILY APPROX. 12 HOURS APART. TAKE WITH OR WITHOUT FOOD)
     Route: 048
  4. MEKTOVI [Suspect]
     Active Substance: BINIMETINIB
     Indication: Malignant melanoma

REACTIONS (2)
  - Death [Fatal]
  - Off label use [Unknown]
